FAERS Safety Report 5323925-1 (Version None)
Quarter: 2007Q2

REPORT INFORMATION
  Report Type: 
  Country: None (occurrence: None)
  Receive Date: 20070509
  Receipt Date: 20070509
  Transmission Date: 20071010
  Serious: Yes (Other)
  Sender: FDA-Public Use
  Company Number: None

PATIENT
  Age: 57 Year
  Sex: Female

DRUGS (1)
  1. HYDROCHLOROQUINE TABS 698 - 200MG WATSON [Suspect]
     Indication: ARTHRITIS
     Dosage: ONE TWICE DAILY

REACTIONS (2)
  - ANOSMIA [None]
  - PAROSMIA [None]
